FAERS Safety Report 20601393 (Version 1)
Quarter: 2022Q1

REPORT INFORMATION
  Report Type: Spontaneous
  Country: US (occurrence: US)
  Receive Date: 20220316
  Receipt Date: 20220316
  Transmission Date: 20220424
  Serious: Yes (Hospitalization)
  Sender: FDA-Public Use
  Company Number: US-MYLANLABS-2022M1019675

PATIENT
  Age: 29 Year
  Sex: Female

DRUGS (9)
  1. DOXORUBICIN [Suspect]
     Active Substance: DOXORUBICIN
     Indication: Sarcoma uterus
     Dosage: UNK UNK, CYCLE
     Route: 065
     Dates: start: 2015
  2. IFOSFAMIDE [Suspect]
     Active Substance: IFOSFAMIDE
     Indication: Sarcoma uterus
     Dosage: UNK
     Route: 065
     Dates: start: 2015
  3. GEMCITABINE [Suspect]
     Active Substance: GEMCITABINE
     Indication: Sarcoma metastatic
     Dosage: UNK
     Route: 065
     Dates: start: 2016
  4. DOCETAXEL [Suspect]
     Active Substance: DOCETAXEL
     Indication: Sarcoma metastatic
     Dosage: UNK
     Route: 065
     Dates: start: 2016
  5. ENTRECTINIB [Suspect]
     Active Substance: ENTRECTINIB
     Indication: Sarcoma metastatic
     Dosage: UNK UNK, CYCLE
     Route: 065
  6. LAROTRECTINIB [Concomitant]
     Active Substance: LAROTRECTINIB
     Indication: Sarcoma metastatic
     Dosage: 100 MILLIGRAM, BID
     Route: 065
     Dates: start: 2017
  7. LEVETIRACETAM [Concomitant]
     Active Substance: LEVETIRACETAM
     Indication: Status epilepticus
     Dosage: UNK
     Route: 065
     Dates: start: 2020
  8. LACOSAMIDE [Concomitant]
     Active Substance: LACOSAMIDE
     Indication: Status epilepticus
     Dosage: UNK
     Route: 065
     Dates: start: 2020
  9. LAMOTRIGINE [Concomitant]
     Active Substance: LAMOTRIGINE
     Indication: Status epilepticus
     Dosage: UNK
     Route: 065
     Dates: start: 2020

REACTIONS (1)
  - Drug ineffective [Unknown]
